FAERS Safety Report 19750730 (Version 1)
Quarter: 2021Q3

REPORT INFORMATION
  Report Type: Spontaneous
  Country: CA (occurrence: CA)
  Receive Date: 20210826
  Receipt Date: 20210826
  Transmission Date: 20211014
  Serious: Yes (Hospitalization)
  Sender: FDA-Public Use
  Company Number: CA-TEVA-2021-CA-1944601

PATIENT
  Age: 91 Year
  Sex: Female

DRUGS (18)
  1. ACETAMINOPHEN. [Concomitant]
     Active Substance: ACETAMINOPHEN
  2. CALCIUM + VITAMIN D [Concomitant]
     Active Substance: CALCIUM\VITAMIN D
  3. MORPHINE [Concomitant]
     Active Substance: MORPHINE
  4. STATEX TAB 5MG [Suspect]
     Active Substance: MORPHINE SULFATE
     Route: 065
  5. CLOPIDOGREL [Concomitant]
     Active Substance: CLOPIDOGREL BISULFATE
  6. COUMADIN [Concomitant]
     Active Substance: WARFARIN SODIUM
  7. AMLODIPINE [Concomitant]
     Active Substance: AMLODIPINE BESYLATE
  8. OXAZEPAM. [Concomitant]
     Active Substance: OXAZEPAM
  9. PANTOPRAZOLE [Concomitant]
     Active Substance: PANTOPRAZOLE
  10. LORAZEPAM. [Concomitant]
     Active Substance: LORAZEPAM
  11. MONOCOR ?(10MG) [Concomitant]
  12. TEVA?EMTEC?30 [Suspect]
     Active Substance: ACETAMINOPHEN\CODEINE PHOSPHATE
     Route: 065
  13. FUROSEMIDE. [Concomitant]
     Active Substance: FUROSEMIDE
  14. K?DUR [Concomitant]
     Active Substance: POTASSIUM CHLORIDE
  15. SPIRONOLACTONE. [Concomitant]
     Active Substance: SPIRONOLACTONE
  16. VITALUX [Concomitant]
     Active Substance: MINERALS\VITAMINS
  17. EMPRACET [Concomitant]
  18. FOSINOPRIL [Concomitant]
     Active Substance: FOSINOPRIL

REACTIONS (1)
  - Delirium [Recovered/Resolved]
